FAERS Safety Report 4269942-4 (Version None)
Quarter: 2004Q1

REPORT INFORMATION
  Report Type: 
  Country: None (occurrence: None)
  Receive Date: 20040114
  Receipt Date: 20040105
  Transmission Date: 20041129
  Serious: Yes (Hospitalization)
  Sender: FDA-Public Use
  Company Number: PHFR2004GB00459

PATIENT
  Age: 69 Year
  Sex: Male

DRUGS (2)
  1. EXELON [Suspect]
     Indication: DEMENTIA ALZHEIMER'S TYPE
     Dosage: 3 MG, BID
     Route: 048
     Dates: start: 20031201, end: 20031201
  2. DONEPEZIL HCL [Concomitant]
     Indication: DEMENTIA ALZHEIMER'S TYPE
     Dosage: 5 MG, QD
     Route: 048
     Dates: start: 20020101, end: 20031201

REACTIONS (4)
  - ARRHYTHMIA [None]
  - CIRCULATORY COLLAPSE [None]
  - CONVULSION [None]
  - SYNCOPE [None]
